FAERS Safety Report 16979359 (Version 6)
Quarter: 2021Q2

REPORT INFORMATION
  Report Type: Other
  Country: CA (occurrence: CA)
  Receive Date: 20191031
  Receipt Date: 20210614
  Transmission Date: 20210716
  Serious: Yes (Other)
  Sender: FDA-Public Use
  Company Number: CA-ROCHE-2447688

PATIENT
  Age: 38 Year
  Sex: Female
  Weight: 73 kg

DRUGS (13)
  1. VOLTAREN [Concomitant]
     Active Substance: DICLOFENAC SODIUM
  2. GABAPENTIN. [Concomitant]
     Active Substance: GABAPENTIN
  3. VALACICLOVIR [Concomitant]
     Active Substance: VALACYCLOVIR HYDROCHLORIDE
  4. MYRBETRIQ [Concomitant]
     Active Substance: MIRABEGRON
  5. ALYSENA [Concomitant]
  6. OCREVUS [Suspect]
     Active Substance: OCRELIZUMAB
     Indication: RELAPSING-REMITTING MULTIPLE SCLEROSIS
     Route: 042
     Dates: start: 20191009
  7. CAFFEINE. [Concomitant]
     Active Substance: CAFFEINE
  8. ACETAMINOFEN [Concomitant]
     Active Substance: ACETAMINOPHEN
  9. CANNABIS [Concomitant]
     Active Substance: CANNABIS SATIVA SUBSP. INDICA TOP
  10. ATIVAN [Concomitant]
     Active Substance: LORAZEPAM
  11. PREDNISONE. [Concomitant]
     Active Substance: PREDNISONE
  12. MODAFINIL. [Concomitant]
     Active Substance: MODAFINIL
  13. ZOPICLONE [Concomitant]
     Active Substance: ZOPICLONE

REACTIONS (24)
  - Cough [Unknown]
  - Emotional disorder [Not Recovered/Not Resolved]
  - Ill-defined disorder [Not Recovered/Not Resolved]
  - Bipolar disorder [Unknown]
  - Vision blurred [Not Recovered/Not Resolved]
  - Depression [Recovering/Resolving]
  - Dizziness [Recovered/Resolved]
  - Fatigue [Not Recovered/Not Resolved]
  - Ear pain [Not Recovered/Not Resolved]
  - Back injury [Recovering/Resolving]
  - Paraesthesia [Unknown]
  - Nervousness [Not Recovered/Not Resolved]
  - Feeling abnormal [Not Recovered/Not Resolved]
  - Headache [Recovered/Resolved]
  - Muscle spasms [Not Recovered/Not Resolved]
  - Ill-defined disorder [Unknown]
  - Infusion related reaction [Recovered/Resolved]
  - Tremor [Not Recovered/Not Resolved]
  - Bipolar I disorder [Not Recovered/Not Resolved]
  - Pain [Recovered/Resolved]
  - Frequent bowel movements [Recovered/Resolved]
  - Muscle twitching [Not Recovered/Not Resolved]
  - Libido decreased [Not Recovered/Not Resolved]
  - Poor quality sleep [Not Recovered/Not Resolved]

NARRATIVE: CASE EVENT DATE: 20191009
